FAERS Safety Report 7556700-8 (Version None)
Quarter: 2011Q2

REPORT INFORMATION
  Report Type: 
  Country: None (occurrence: None)
  Receive Date: 20110620
  Receipt Date: 20110614
  Transmission Date: 20111010
  Serious: Yes (Other)
  Sender: FDA-Public Use
  Company Number: US-PFIZER INC-2011132154

PATIENT
  Sex: Female

DRUGS (2)
  1. LATANOPROST [Suspect]
     Dosage: UNK
     Dates: start: 20110301
  2. XALATAN [Suspect]
     Dosage: UNK
     Dates: start: 20010101

REACTIONS (1)
  - INTRAOCULAR PRESSURE INCREASED [None]
